FAERS Safety Report 6468924-1 (Version None)
Quarter: 2009Q4

REPORT INFORMATION
  Report Type: 
  Country: None (occurrence: None)
  Receive Date: 20091203
  Receipt Date: 20090710
  Transmission Date: 20100525
  Serious: Yes (Other)
  Sender: FDA-Public Use
  Company Number: US-ELI_LILLY_AND_COMPANY-US200602000189

PATIENT
  Sex: Male
  Weight: 81.632 kg

DRUGS (5)
  1. ZYPREXA [Suspect]
     Indication: SCHIZOPHRENIA, PARANOID TYPE
     Dosage: 5 MG, UNK
     Route: 048
     Dates: start: 19970101
  2. ZYPREXA [Suspect]
     Dosage: 5 MG, EACH EVENING
     Route: 048
     Dates: start: 20000524, end: 20050321
  3. ZYPREXA [Suspect]
     Dosage: 5 MG, EACH EVENING
     Dates: start: 20050501
  4. ABILIFY [Concomitant]
     Indication: SCHIZOPHRENIA
     Dosage: 5 MG, EACH EVENING
     Dates: start: 20050321, end: 20050301
  5. ABILIFY [Concomitant]
     Dosage: 10 MG, EACH MORNING
     Dates: start: 20050301, end: 20050501

REACTIONS (5)
  - AMPUTATION [None]
  - GANGRENE [None]
  - HYPOGLYCAEMIA [None]
  - TYPE 2 DIABETES MELLITUS [None]
  - WEIGHT INCREASED [None]
